FAERS Safety Report 6481008-1 (Version None)
Quarter: 2009Q4

REPORT INFORMATION
  Report Type: 
  Country: None (occurrence: None)
  Receive Date: 20091208
  Receipt Date: 20091117
  Transmission Date: 20100525
  Serious: Yes (Hospitalization)
  Sender: FDA-Public Use
  Company Number: PHHO2009DE11561

PATIENT
  Sex: Male
  Weight: 82.8 kg

DRUGS (7)
  1. BLINDED ALISKIREN ALI+TAB+CF [Suspect]
     Indication: CARDIAC FAILURE
     Dosage: NO TREATMENT
  2. ENALAPRIL MALEATE [Suspect]
     Indication: CARDIAC FAILURE
     Dosage: NO TREATMENT
  3. BLINDED NO TREATMENT RECEIVED NOMED [Suspect]
     Indication: CARDIAC FAILURE
     Dosage: NO TREATMENT
  4. ALISKIREN [Suspect]
     Indication: CARDIAC FAILURE
     Dosage: 150 MG, UNK
     Route: 048
     Dates: start: 20090820, end: 20090909
  5. ENALAPRIL MALEATE [Suspect]
     Indication: CARDIAC FAILURE
     Dosage: UNK
     Route: 048
     Dates: start: 20090803, end: 20090909
  6. TORASEMIDE [Concomitant]
     Indication: CARDIAC FAILURE CHRONIC
  7. BISOPROLOL [Concomitant]

REACTIONS (18)
  - CARDIAC FAILURE [None]
  - CELLULITIS [None]
  - CONCOMITANT DISEASE PROGRESSION [None]
  - COUGH [None]
  - DECREASED APPETITE [None]
  - DIVERTICULUM INTESTINAL [None]
  - ERUCTATION [None]
  - ERYTHEMA [None]
  - GASTRITIS EROSIVE [None]
  - HYPERTENSION [None]
  - INSOMNIA [None]
  - NAUSEA [None]
  - NOCTURNAL DYSPNOEA [None]
  - OEDEMA PERIPHERAL [None]
  - PAIN IN EXTREMITY [None]
  - REFLUX OESOPHAGITIS [None]
  - RENAL FAILURE [None]
  - SKIN WARM [None]
